FAERS Safety Report 7974210-0 (Version None)
Quarter: 2011Q4

REPORT INFORMATION
  Report Type: 
  Country: None (occurrence: None)
  Receive Date: 20111209
  Receipt Date: 20111201
  Transmission Date: 20120403
  Serious: Yes (Hospitalization, Other)
  Sender: FDA-Public Use
  Company Number: 2011MA017144

PATIENT
  Age: 31 Year
  Sex: Male
  Weight: 79.3795 kg

DRUGS (12)
  1. KLONOPIN [Concomitant]
  2. VICODIN [Concomitant]
  3. TRAZODONE HCL [Concomitant]
  4. METOCLOPRAMIDE [Suspect]
     Indication: NAUSEA
     Dosage: ;UNK;UNK
  5. REMERON [Concomitant]
  6. ZYPREXA [Concomitant]
  7. PIMOZIDE [Concomitant]
  8. AMITRIPTYLINE HCL [Concomitant]
  9. XANAX [Concomitant]
  10. NEURONTIN [Concomitant]
  11. CEREFOLIN NAC [Concomitant]
  12. VITAMIN E [Concomitant]

REACTIONS (10)
  - TARDIVE DYSKINESIA [None]
  - ANXIETY [None]
  - FLAT AFFECT [None]
  - DRUG ABUSE [None]
  - RESTLESSNESS [None]
  - DYSKINESIA [None]
  - SELF-MEDICATION [None]
  - AKATHISIA [None]
  - PANCREATITIS [None]
  - PAIN [None]
